FAERS Safety Report 11194416 (Version 1)
Quarter: 2015Q2

REPORT INFORMATION
  Report Type: Report from Study
  Country: NL (occurrence: NL)
  Receive Date: 20150616
  Receipt Date: 20150616
  Transmission Date: 20150821
  Serious: Yes (Other)
  Sender: FDA-Public Use
  Company Number: PHHY2015NL071744

PATIENT
  Sex: Female

DRUGS (1)
  1. ZOMETA [Suspect]
     Active Substance: ZOLEDRONIC ACID
     Indication: NEOPLASM MALIGNANT
     Dosage: 4MG/100ML ONCE EVERY 4 WEEKS
     Route: 042

REACTIONS (2)
  - Terminal state [Unknown]
  - Off label use [Unknown]
